FAERS Safety Report 25419347 (Version 1)
Quarter: 2025Q2

REPORT INFORMATION
  Report Type: Spontaneous
  Country: CA (occurrence: CA)
  Receive Date: 20250610
  Receipt Date: 20250610
  Transmission Date: 20250717
  Serious: Yes (Death, Other)
  Sender: PFIZER
  Company Number: CA-PFIZER INC-PV202500069073

PATIENT
  Age: 69 Year
  Sex: Female

DRUGS (4)
  1. BRAFTOVI [Suspect]
     Active Substance: ENCORAFENIB
     Indication: Colorectal cancer metastatic
     Dosage: 300 MG, 1X/DAY, FOUR 75 MG CAPSULES
     Route: 048
  2. BRAFTOVI [Suspect]
     Active Substance: ENCORAFENIB
     Indication: BRAF V600E mutation positive
  3. CETUXIMAB [Concomitant]
     Active Substance: CETUXIMAB
     Indication: Colorectal cancer metastatic
  4. CETUXIMAB [Concomitant]
     Active Substance: CETUXIMAB
     Indication: BRAF V600E mutation positive

REACTIONS (1)
  - Death [Fatal]
